FAERS Safety Report 8861932 (Version 1)
Quarter: 2012Q4

REPORT INFORMATION
  Report Type: 
  Country: US (occurrence: US)
  Receive Date: 20121026
  Receipt Date: 20121026
  Transmission Date: 20130627
  Serious: Yes (Other)
  Sender: FDA-Public Use
  Company Number: US-AMGEN-USASP2012067634

PATIENT
  Sex: Female

DRUGS (2)
  1. XGEVA [Suspect]
     Indication: BREAST CANCER METASTATIC
     Dosage: 120 mg, q4wk
  2. XGEVA [Suspect]
     Indication: METASTASES TO BONE

REACTIONS (2)
  - Metastases to bone [Not Recovered/Not Resolved]
  - Pain in jaw [Not Recovered/Not Resolved]
